FAERS Safety Report 8830642 (Version 1)
Quarter: 2012Q4

REPORT INFORMATION
  Report Type: 
  Country: US (occurrence: US)
  Receive Date: 20121008
  Receipt Date: 20121008
  Transmission Date: 20130627
  Serious: No
  Sender: FDA-Public Use
  Company Number: US-BAYER-2012-103338

PATIENT
  Age: 74 Year
  Sex: Female
  Weight: 62.59 kg

DRUGS (9)
  1. ALEVE CAPLET/TABLET,MIDOL EXTENDED RELIEF CAPLET [Suspect]
     Indication: ARTHRITIS
     Dosage: 1 DF, BID
     Route: 048
     Dates: start: 201208, end: 20120925
  2. ALEVE CAPLET/TABLET,MIDOL EXTENDED RELIEF CAPLET [Suspect]
     Indication: ARTHRITIS
     Dosage: 1 DF, UNK
     Dates: start: 201208, end: 201208
  3. BETAMOL [Concomitant]
     Indication: PRODUCT USED FOR UNKNOWN INDICATION
  4. TRAVATAN [Concomitant]
  5. BABY ASPIRIN [Concomitant]
  6. ETRAPTIN [Concomitant]
  7. MULTI VITAMIN [Concomitant]
  8. FISH OIL [Concomitant]
  9. GLUCOSAMINE SULFATE W/CHONDROITIN [Concomitant]

REACTIONS (1)
  - Abdominal discomfort [Recovered/Resolved]
